FAERS Safety Report 6655182-8 (Version None)
Quarter: 2010Q1

REPORT INFORMATION
  Report Type: 
  Country: None (occurrence: None)
  Receive Date: 20100329
  Receipt Date: 20100315
  Transmission Date: 20100710
  Serious: Yes (Hospitalization)
  Sender: FDA-Public Use
  Company Number: ES-ELI_LILLY_AND_COMPANY-ES201003004281

PATIENT
  Age: 85 Year
  Sex: Female

DRUGS (11)
  1. FORTEO [Suspect]
     Indication: OSTEOPOROSIS
     Dosage: 20 UG, DAILY (1/D)
     Route: 058
     Dates: start: 20090101, end: 20100204
  2. OMEPRAZOLE [Concomitant]
     Indication: PROPHYLAXIS AGAINST GASTROINTESTINAL ULCER
     Dosage: UNK, DAILY (1/D)
     Route: 065
  3. LOSEC [Concomitant]
     Indication: PROPHYLAXIS AGAINST GASTROINTESTINAL ULCER
     Dosage: UNK, DAILY (1/D)
     Route: 065
  4. SEGURIL [Concomitant]
     Indication: HYPERTENSION
     Dosage: UNK, DAILY (1/D)
     Route: 065
  5. ALDACTONE [Concomitant]
     Indication: HYPERTENSION
     Dosage: UNK, DAILY (1/D)
     Route: 065
  6. LOSARTAN POTASSIUM [Concomitant]
     Indication: HYPERTENSION
     Dosage: UNK, DAILY (1/D)
     Route: 065
  7. KEPPRA [Concomitant]
     Dosage: UNK, 2/D
     Route: 065
  8. SEROQUEL [Concomitant]
     Dosage: EVERY 12 HOURS, OTHER
     Route: 065
  9. SINEMET [Concomitant]
     Indication: PARKINSON'S DISEASE
     Dosage: UNK, 3/D
     Route: 065
  10. BOREA [Concomitant]
     Indication: NEOPLASM MALIGNANT
     Dosage: EVERY 12 HOURS, OTHER
     Route: 065
  11. SINTROM [Concomitant]
     Dosage: UNK, DAILY (1/D)
     Route: 065

REACTIONS (2)
  - ANAEMIA [None]
  - DIZZINESS [None]
